FAERS Safety Report 6908114-9 (Version None)
Quarter: 2010Q3

REPORT INFORMATION
  Report Type: 
  Country: None (occurrence: None)
  Receive Date: 20100805
  Receipt Date: 20100728
  Transmission Date: 20110219
  Serious: Yes (Hospitalization, Other)
  Sender: FDA-Public Use
  Company Number: US-ELI_LILLY_AND_COMPANY-US201008000338

PATIENT
  Age: 67 Year
  Sex: Female

DRUGS (6)
  1. PRASUGREL HYDROCHLORIDE [Suspect]
     Indication: ACUTE CORONARY SYNDROME
     Dosage: UNK, UNK
     Dates: start: 20100505
  2. ASPIRIN [Concomitant]
     Indication: ACUTE CORONARY SYNDROME
     Dosage: 324 MG, UNK
     Dates: start: 20100505
  3. OMEPRAZOLE [Concomitant]
     Indication: PRODUCT USED FOR UNKNOWN INDICATION
     Dosage: 40 MG, DAILY (1/D)
     Route: 048
     Dates: start: 20100406
  4. GLIMEPIRIDE [Concomitant]
     Indication: DIABETES MELLITUS
     Dosage: 1 MG, 2/D
     Route: 048
     Dates: start: 20100506
  5. LISINOPRIL [Concomitant]
     Indication: HYPERTENSION
     Dosage: 20 MG, DAILY (1/D)
     Route: 048
     Dates: start: 20050101
  6. CRESTOR [Concomitant]
     Indication: HYPERLIPIDAEMIA
     Dosage: 20 MG, EACH EVENING
     Route: 048
     Dates: start: 20100505

REACTIONS (1)
  - ANAEMIA [None]
